FAERS Safety Report 4681729-7 (Version None)
Quarter: 2005Q2

REPORT INFORMATION
  Report Type: 
  Country: None (occurrence: None)
  Receive Date: 20050603
  Receipt Date: 20050310
  Transmission Date: 20051028
  Serious: Yes (Hospitalization, Other)
  Sender: FDA-Public Use
  Company Number: US-MERCK-0503USA01911

PATIENT
  Age: 75 Year
  Sex: Female
  Weight: 91 kg

DRUGS (14)
  1. VIOXX [Suspect]
     Indication: ARTHRITIS
     Route: 048
     Dates: start: 19990101, end: 20040101
  2. LASIX [Concomitant]
     Route: 065
  3. DIGOXIN [Concomitant]
     Route: 065
     Dates: start: 20030101
  4. ZOCOR [Concomitant]
     Route: 048
     Dates: start: 20030101
  5. PACERONE [Concomitant]
     Indication: HEART RATE ABNORMAL
     Route: 065
  6. LORAZEPAM [Concomitant]
     Route: 065
  7. NEURONTIN [Concomitant]
     Route: 065
  8. MECLIZINE [Concomitant]
     Route: 065
  9. SALMETEROL [Concomitant]
     Route: 065
  10. BACLOFEN [Concomitant]
     Route: 065
  11. TEMAZEPAM [Concomitant]
     Route: 065
  12. CENTRUM [Concomitant]
     Route: 065
  13. POTASSIUM (UNSPECIFIED) [Concomitant]
     Route: 065
  14. POTASSIUM (UNSPECIFIED) [Concomitant]
     Route: 065

REACTIONS (29)
  - ARTHRALGIA [None]
  - ASTHMA [None]
  - ATRIAL FIBRILLATION [None]
  - BURSITIS [None]
  - CARDIAC FAILURE CONGESTIVE [None]
  - CARDIAC MURMUR [None]
  - CATARACT [None]
  - CHRONIC FATIGUE SYNDROME [None]
  - DEPRESSION [None]
  - DYSPNOEA [None]
  - EMOTIONAL DISTRESS [None]
  - EYE INJURY [None]
  - FALL [None]
  - GASTRITIS [None]
  - HIATUS HERNIA [None]
  - HYPERCHOLESTEROLAEMIA [None]
  - HYPERTENSION [None]
  - INSOMNIA [None]
  - ISCHAEMIC STROKE [None]
  - LOWER LIMB FRACTURE [None]
  - MENINGIOMA [None]
  - MYOCARDIAL INFARCTION [None]
  - OEDEMA PERIPHERAL [None]
  - PALPITATIONS [None]
  - RASH [None]
  - SCLERAL HAEMORRHAGE [None]
  - SICK SINUS SYNDROME [None]
  - SLEEP APNOEA SYNDROME [None]
  - TRI-IODOTHYRONINE UPTAKE INCREASED [None]
